FAERS Safety Report 7329086-1 (Version None)
Quarter: 2011Q1

REPORT INFORMATION
  Report Type: 
  Country: None (occurrence: None)
  Receive Date: 20110303
  Receipt Date: 20110225
  Transmission Date: 20110831
  Serious: Yes (Other)
  Sender: FDA-Public Use
  Company Number: US-ABBOTT-11P-163-0708408-00

PATIENT
  Sex: Male
  Weight: 124.4 kg

DRUGS (14)
  1. ASPIRIN [Concomitant]
     Indication: PRODUCT USED FOR UNKNOWN INDICATION
  2. ZETIA [Concomitant]
     Indication: BLOOD CHOLESTEROL ABNORMAL
  3. GLIMEPIRIDE [Concomitant]
     Indication: DIABETES MELLITUS
  4. ACTOPLUS MET [Concomitant]
     Indication: DIABETES MELLITUS
  5. METOPROLOL TARTRATE [Concomitant]
     Indication: BLOOD PRESSURE
  6. NIASPAN [Suspect]
     Indication: BLOOD TRIGLYCERIDES INCREASED
  7. LIPITOR [Concomitant]
     Indication: BLOOD CHOLESTEROL ABNORMAL
  8. FOLBIC [Concomitant]
     Indication: PRODUCT USED FOR UNKNOWN INDICATION
  9. NIASPAN [Suspect]
     Indication: BLOOD CHOLESTEROL ABNORMAL
  10. MULTI-VITAMIN [Concomitant]
     Indication: PRODUCT USED FOR UNKNOWN INDICATION
  11. FENOFIBRATE [Concomitant]
     Indication: BLOOD CHOLESTEROL ABNORMAL
  12. SINGULAIR [Concomitant]
     Indication: HYPERSENSITIVITY
  13. PLAVIX [Concomitant]
     Indication: PRODUCT USED FOR UNKNOWN INDICATION
  14. NITROGLYCERIN [Concomitant]
     Indication: CHEST PAIN

REACTIONS (7)
  - DYSSTASIA [None]
  - VASCULAR BYPASS DYSFUNCTION [None]
  - NERVE INJURY [None]
  - DYSKINESIA [None]
  - NECK PAIN [None]
  - INTERVERTEBRAL DISC DISORDER [None]
  - FLUSHING [None]
